FAERS Safety Report 8916580 (Version 1)
Quarter: 2012Q4

REPORT INFORMATION
  Report Type: 
  Country: CN (occurrence: CN)
  Receive Date: 20121120
  Receipt Date: 20121120
  Transmission Date: 20130627
  Serious: Yes (Death, Hospitalization)
  Sender: FDA-Public Use
  Company Number: CN-WATSON-2012-19344

PATIENT
  Age: 51 Year
  Sex: Male

DRUGS (1)
  1. DEXAMETHASONE [Suspect]
     Indication: UVEITIS
     Dosage: UNK, unknown
     Route: 050

REACTIONS (7)
  - Cytomegalovirus infection [Fatal]
  - Histiocytosis haematophagic [Fatal]
  - Condition aggravated [Fatal]
  - Pyrexia [None]
  - Renal failure [None]
  - Pleural effusion [None]
  - Multi-organ failure [None]
